FAERS Safety Report 7664392-2 (Version None)
Quarter: 2011Q3

REPORT INFORMATION
  Report Type: 
  Country: None (occurrence: None)
  Receive Date: 20110806
  Receipt Date: 20110124
  Transmission Date: 20111222
  Serious: No
  Sender: FDA-Public Use
  Company Number: US-ABBOTT-11P-163-0700054-00

PATIENT
  Sex: Female
  Weight: 68.1 kg

DRUGS (1)
  1. NIASPAN [Suspect]
     Indication: HYPERLIPIDAEMIA
     Dates: start: 20090301, end: 20090401

REACTIONS (3)
  - FORMICATION [None]
  - FLUSHING [None]
  - BLISTER [None]
